FAERS Safety Report 18450739 (Version 1)
Quarter: 2020Q4

REPORT INFORMATION
  Report Type: Spontaneous
  Country: NL (occurrence: NL)
  Receive Date: 20201102
  Receipt Date: 20201102
  Transmission Date: 20210114
  Serious: Yes (Hospitalization)
  Sender: FDA-Public Use
  Company Number: NL-B.I. PHARMACEUTICALS,INC./RIDGEFIELD-2020-BI-057287

PATIENT
  Sex: Male
  Weight: 75 kg

DRUGS (3)
  1. CANDESARTAN. [Concomitant]
     Active Substance: CANDESARTAN
     Indication: PRODUCT USED FOR UNKNOWN INDICATION
     Dosage: TABLET, 4 MG (MILLIGRAM)
     Route: 065
  2. PRADAXA [Suspect]
     Active Substance: DABIGATRAN ETEXILATE MESYLATE
     Indication: ATRIAL FIBRILLATION
     Dosage: 1D1
     Route: 065
     Dates: start: 20140321, end: 20200701
  3. PANTOPRAZOLE [Concomitant]
     Active Substance: PANTOPRAZOLE
     Indication: PRODUCT USED FOR UNKNOWN INDICATION
     Dosage: GASTRO-RESISTANT TABLET, 20 MG (MAAGSAPRESISTENTE TABLET, 20 MG (MILLIGRAM))
     Route: 065

REACTIONS (3)
  - Hyponatraemia [Unknown]
  - Migraine [Unknown]
  - Hallucination [Recovered/Resolved]
